FAERS Safety Report 10911969 (Version 1)
Quarter: 2015Q1

REPORT INFORMATION
  Report Type: Spontaneous
  Country: US (occurrence: None)
  Receive Date: 20150310
  Receipt Date: 20150310
  Transmission Date: 20150721
  Serious: Yes (Death)
  Sender: FDA-Public Use
  Company Number: None

PATIENT
  Age: 44 Year
  Sex: Male

DRUGS (1)
  1. NEXAVAR [Suspect]
     Active Substance: SORAFENIB
     Indication: NEOPLASM MALIGNANT
     Dosage: 200MG 2 TABLETS TWICE DAILY ORAL
     Route: 048
     Dates: start: 20140424, end: 20140524

REACTIONS (1)
  - Death [None]

NARRATIVE: CASE EVENT DATE: 20141030
